FAERS Safety Report 21659113 (Version 1)
Quarter: 2022Q4

REPORT INFORMATION
  Report Type: Spontaneous
  Country: ES (occurrence: ES)
  Receive Date: 20221129
  Receipt Date: 20221129
  Transmission Date: 20230112
  Serious: Yes (Death, Life-Threatening, Hospitalization, Other)
  Sender: FDA-Public Use
  Company Number: ES-VELOXIS PHARMACEUTICALS-2022VELES-000344

PATIENT
  Age: 69 Year
  Sex: Male

DRUGS (3)
  1. TACROLIMUS [Suspect]
     Active Substance: TACROLIMUS
     Indication: Immunosuppressant drug therapy
     Dosage: UNK
     Route: 065
  2. GANCICLOVIR [Suspect]
     Active Substance: GANCICLOVIR
     Indication: Product used for unknown indication
     Dosage: UNK
     Route: 065
  3. METHYLPREDNISOLONE [Suspect]
     Active Substance: METHYLPREDNISOLONE
     Indication: Immunosuppressant drug therapy
     Dosage: UNK
     Route: 065

REACTIONS (9)
  - Herpes simplex sepsis [Fatal]
  - Septic shock [Fatal]
  - Renal impairment [Unknown]
  - Hepatic function abnormal [Unknown]
  - Ileus paralytic [Unknown]
  - Thrombocytopenia [Unknown]
  - Human herpesvirus 6 infection [Recovered/Resolved]
  - Influenza [Unknown]
  - Product use in unapproved indication [Recovered/Resolved]
